FAERS Safety Report 4332479-8 (Version None)
Quarter: 2004Q2

REPORT INFORMATION
  Report Type: 
  Country: None (occurrence: None)
  Receive Date: 20040401
  Receipt Date: 20040323
  Transmission Date: 20050107
  Serious: Yes (Other)
  Sender: FDA-Public Use
  Company Number: 2004-03-1904

PATIENT
  Age: 4 Year
  Sex: Male

DRUGS (1)
  1. CELESTAMINE TAB [Suspect]
     Indication: ECZEMA
     Dosage: 15 ML ORAL
     Route: 048
     Dates: start: 20040224, end: 20040308

REACTIONS (1)
  - FIBULA FRACTURE [None]
